FAERS Safety Report 21314887 (Version 2)
Quarter: 2022Q3

REPORT INFORMATION
  Report Type: Spontaneous
  Country: BR (occurrence: BR)
  Receive Date: 20220909
  Receipt Date: 20220914
  Transmission Date: 20221027
  Serious: Yes (Other)
  Sender: FDA-Public Use
  Company Number: BR-PFIZER INC-2019077775

PATIENT
  Age: 63 Year
  Sex: Female

DRUGS (1)
  1. LORAZEPAM [Suspect]
     Active Substance: LORAZEPAM
     Indication: Panic disorder
     Dosage: 1 MG, 1X/DAY
     Dates: start: 1991

REACTIONS (18)
  - Drug dependence [Recovered/Resolved]
  - Eye operation [Unknown]
  - Cold sweat [Recovered/Resolved]
  - Vision blurred [Recovered/Resolved]
  - Chest discomfort [Recovered/Resolved]
  - Respiration abnormal [Recovered/Resolved]
  - Hypotension [Recovered/Resolved]
  - Intentional dose omission [Unknown]
  - Wrong technique in product usage process [Unknown]
  - Feeling abnormal [Recovered/Resolved]
  - Sleep deficit [Recovered/Resolved]
  - Anxiety [Recovered/Resolved]
  - Nervousness [Recovered/Resolved]
  - Product use issue [Recovered/Resolved]
  - Withdrawal syndrome [Not Recovered/Not Resolved]
  - Intentional product misuse [Unknown]
  - Wrong technique in product usage process [Unknown]
  - Tremor [Unknown]
